FAERS Safety Report 21755887 (Version 2)
Quarter: 2024Q4

REPORT INFORMATION
  Report Type: Spontaneous
  Country: IN (occurrence: IN)
  Receive Date: 20221220
  Receipt Date: 20241127
  Transmission Date: 20250115
  Serious: Yes (Death)
  Sender: PFIZER
  Company Number: IN-PFIZER INC-PV202200127589

PATIENT
  Age: 57 Year
  Sex: Male

DRUGS (1)
  1. CRIZOTINIB [Suspect]
     Active Substance: CRIZOTINIB
     Dosage: 250 MG, 2X/DAY
     Route: 048
     Dates: start: 20210422

REACTIONS (1)
  - Death [Fatal]

NARRATIVE: CASE EVENT DATE: 20221215
